FAERS Safety Report 11888425 (Version 2)
Quarter: 2016Q1

REPORT INFORMATION
  Report Type: Report from Study
  Country: DE (occurrence: DE)
  Receive Date: 20160105
  Receipt Date: 20160114
  Transmission Date: 20160526
  Serious: Yes (Hospitalization, Other)
  Sender: FDA-Public Use
  Company Number: PHHY2015DE120372

PATIENT
  Sex: Female
  Weight: 58 kg

DRUGS (13)
  1. AFINITOR [Suspect]
     Active Substance: EVEROLIMUS
     Dosage: ONE DAY 10.0 MG (ALTERNATING  WITH TWO DAYS 5.0 MG)
     Route: 048
     Dates: start: 20150603, end: 20150718
  2. AFINITOR [Suspect]
     Active Substance: EVEROLIMUS
     Dosage: TWO DAY 5 MG, ORAL (ALTERNATING  WITH ONE DAY 10.0 MG)
     Route: 048
     Dates: start: 20151002, end: 20151211
  3. LEXOTANIL [Concomitant]
     Active Substance: BROMAZEPAM
     Indication: PRODUCT USED FOR UNKNOWN INDICATION
     Dosage: 6 MG, UNK (ON DEMAND)
     Route: 065
     Dates: start: 20141114
  4. METFORMIN [Concomitant]
     Active Substance: METFORMIN HYDROCHLORIDE
     Indication: PRODUCT USED FOR UNKNOWN INDICATION
     Dosage: 500 MG, BID
     Route: 065
     Dates: start: 20141114
  5. BISOPROLOL STADA [Concomitant]
     Indication: PRODUCT USED FOR UNKNOWN INDICATION
     Dosage: 7.5 MG, ONCE/SINGLE
     Route: 065
     Dates: start: 2006
  6. AMLODIPIN 1 A PHARMA [Concomitant]
     Indication: PRODUCT USED FOR UNKNOWN INDICATION
     Dosage: 5 MG, QD
     Route: 065
     Dates: start: 20141114
  7. AFINITOR [Suspect]
     Active Substance: EVEROLIMUS
     Indication: BREAST CANCER METASTATIC
     Dosage: 5 MG, QD
     Route: 048
     Dates: start: 20150414, end: 20150429
  8. EXEMESTANE. [Concomitant]
     Active Substance: EXEMESTANE
     Indication: BREAST CANCER METASTATIC
     Dosage: 25 MG, QD
     Route: 048
     Dates: start: 20150414, end: 20151212
  9. AFINITOR [Suspect]
     Active Substance: EVEROLIMUS
     Dosage: 10.0 MG EVERY TWO DAYS, (ALTERNATING WITH 5.0 MG)
     Route: 048
     Dates: start: 20150430, end: 20150526
  10. SIMVABETA [Concomitant]
     Active Substance: SIMVASTATIN
     Indication: PRODUCT USED FOR UNKNOWN INDICATION
     Dosage: 20 MG, ONCE/SINGLE
     Route: 065
     Dates: start: 20141114
  11. ASA [Concomitant]
     Active Substance: ASPIRIN
     Indication: PRODUCT USED FOR UNKNOWN INDICATION
     Dosage: 100 MG, ONCE/SINGLE
     Route: 065
     Dates: start: 20141114
  12. AFINITOR [Suspect]
     Active Substance: EVEROLIMUS
     Dosage: 5 MG, QD
     Route: 048
     Dates: start: 20150905, end: 20151001
  13. RAMIPRIL. [Concomitant]
     Active Substance: RAMIPRIL
     Indication: PRODUCT USED FOR UNKNOWN INDICATION
     Dosage: 5 MG, QD
     Route: 065
     Dates: start: 2006

REACTIONS (11)
  - Weight decreased [Unknown]
  - Femoral neck fracture [Recovered/Resolved]
  - General physical condition abnormal [Unknown]
  - Hyponatraemia [Unknown]
  - Femoral neck fracture [Unknown]
  - Dehydration [Unknown]
  - Bone pain [Unknown]
  - Musculoskeletal pain [Recovered/Resolved]
  - Pain in extremity [Recovered/Resolved]
  - Fatigue [Recovering/Resolving]
  - Hypokalaemia [Unknown]

NARRATIVE: CASE EVENT DATE: 20150718
